FAERS Safety Report 15487867 (Version 3)
Quarter: 2018Q4

REPORT INFORMATION
  Report Type: Spontaneous
  Country: JP (occurrence: JP)
  Receive Date: 20181011
  Receipt Date: 20181016
  Transmission Date: 20190205
  Serious: Yes (Other)
  Sender: FDA-Public Use
  Company Number: JP-SA-2018SA273806

PATIENT
  Age: 79 Year
  Sex: Female

DRUGS (3)
  1. FLUOROURACIL. [Concomitant]
     Active Substance: FLUOROURACIL
     Indication: LARYNGEAL CANCER
     Dosage: UNK
     Route: 065
     Dates: start: 201708
  2. TAXOTERE [Suspect]
     Active Substance: DOCETAXEL
     Indication: LARYNGEAL CANCER
     Dosage: UNK
     Route: 041
     Dates: start: 201708
  3. CISPLATIN. [Concomitant]
     Active Substance: CISPLATIN
     Indication: LARYNGEAL CANCER
     Dosage: UNK
     Route: 065
     Dates: start: 201708

REACTIONS (10)
  - Gastritis bacterial [Recovering/Resolving]
  - C-reactive protein increased [Recovering/Resolving]
  - Erythema [Recovering/Resolving]
  - Flatulence [Recovered/Resolved]
  - Septic shock [Unknown]
  - White blood cell count increased [Recovering/Resolving]
  - Oedema mucosal [Recovering/Resolving]
  - Febrile neutropenia [Unknown]
  - Abdominal pain upper [Recovering/Resolving]
  - Haematemesis [Recovering/Resolving]
